FAERS Safety Report 8117936-0 (Version None)
Quarter: 2012Q1

REPORT INFORMATION
  Report Type: 
  Country: None (occurrence: None)
  Receive Date: 20120207
  Receipt Date: 20120203
  Transmission Date: 20120608
  Serious: No
  Sender: FDA-Public Use
  Company Number: US-BAYER-2012-011453

PATIENT
  Age: 36 Year
  Sex: Female

DRUGS (2)
  1. MIRENA [Suspect]
     Indication: MENORRHAGIA
  2. MIRENA [Suspect]
     Indication: CONTRACEPTION
     Dosage: DAILY DOSE 20 ?G
     Route: 015
     Dates: end: 20111220

REACTIONS (1)
  - DEVICE EXPULSION [None]
